FAERS Safety Report 6583989-4 (Version None)
Quarter: 2010Q1

REPORT INFORMATION
  Report Type: 
  Country: None (occurrence: None)
  Receive Date: 20100216
  Receipt Date: 20091221
  Transmission Date: 20100710
  Serious: No
  Sender: FDA-Public Use
  Company Number: US-ABBOTT-09P-163-0615641-00

PATIENT
  Sex: Male
  Weight: 88.53 kg

DRUGS (8)
  1. SIMCOR [Suspect]
     Indication: HYPERLIPIDAEMIA
     Dosage: 500 MG/20 MG PER ORAL NIGHTLY
     Route: 048
     Dates: start: 20091214
  2. PRILOSEC [Concomitant]
     Indication: DRUG USE FOR UNKNOWN INDICATION
     Dosage: MEDS TAKEN AS DIRECTED
  3. FE SULFATE [Concomitant]
     Indication: DRUG USE FOR UNKNOWN INDICATION
     Dosage: MEDS TAKEN AS DIRECTED
  4. B1 COMPLEX [Concomitant]
     Indication: DRUG USE FOR UNKNOWN INDICATION
     Dosage: MEDS TAKEN AS DIRECTED
  5. M.V.I. [Concomitant]
     Indication: DRUG USE FOR UNKNOWN INDICATION
     Dosage: MEDS TAKEN AS DIRECTED
  6. FISH OIL [Concomitant]
     Indication: DRUG USE FOR UNKNOWN INDICATION
     Dosage: SUPPLEMENT MEDS TAKEN AS DIRECTED
  7. COMBIVENT [Concomitant]
     Indication: DRUG USE FOR UNKNOWN INDICATION
     Dosage: MEDS TAKEN AS DIRECTED
  8. VITAMINS OTC [Concomitant]
     Indication: DRUG USE FOR UNKNOWN INDICATION
     Dosage: MEDS TAKEN AS DIRECTED

REACTIONS (2)
  - ABDOMINAL DISCOMFORT [None]
  - FLUSHING [None]
